FAERS Safety Report 6570440-3 (Version None)
Quarter: 2010Q1

REPORT INFORMATION
  Report Type: 
  Country: None (occurrence: None)
  Receive Date: 20100204
  Receipt Date: 20090528
  Transmission Date: 20100710
  Serious: No
  Sender: FDA-Public Use
  Company Number: A0787102A

PATIENT
  Sex: Female

DRUGS (3)
  1. ARIXTRA [Suspect]
     Dosage: 2.5MG TWICE PER DAY
     Route: 058
     Dates: start: 20090528
  2. HUMIRA [Concomitant]
  3. UNKNOWN MEDICATION [Concomitant]
     Indication: INFERTILITY

REACTIONS (1)
  - INJECTION SITE PAIN [None]
